FAERS Safety Report 24586334 (Version 1)
Quarter: 2024Q4

REPORT INFORMATION
  Report Type: Report from Study
  Country: CA (occurrence: CA)
  Receive Date: 20241106
  Receipt Date: 20241106
  Transmission Date: 20250114
  Serious: Yes (Other)
  Sender: JOHNSON AND JOHNSON
  Company Number: CA-JNJFOC-20240542851

PATIENT
  Age: 31 Year
  Sex: Female
  Weight: 64 kg

DRUGS (2)
  1. REMICADE [Suspect]
     Active Substance: INFLIXIMAB
     Indication: Crohn^s disease
     Dosage: EXPIRY DATE: 30/NOV/2026?EXPIRY DATE: 28-FEB-2026
     Route: 041
  2. AMOXICILLIN [Suspect]
     Active Substance: AMOXICILLIN
     Indication: Pharyngitis streptococcal
     Route: 065

REACTIONS (6)
  - Pharyngitis streptococcal [Recovered/Resolved]
  - Nephrolithiasis [Not Recovered/Not Resolved]
  - Crohn^s disease [Not Recovered/Not Resolved]
  - Irritable bowel syndrome [Not Recovered/Not Resolved]
  - Viral infection [Recovered/Resolved]
  - Nasopharyngitis [Recovered/Resolved]

NARRATIVE: CASE EVENT DATE: 20240101
